FAERS Safety Report 8115843-0 (Version None)
Quarter: 2011Q4

REPORT INFORMATION
  Report Type: 
  Country: None (occurrence: None)
  Receive Date: 20111227
  Receipt Date: 20111201
  Transmission Date: 20120403
  Serious: Yes (Hospitalization, Other)
  Sender: FDA-Public Use
  Company Number: PHHY2011US25495

PATIENT
  Age: 31 Year
  Sex: Female

DRUGS (5)
  1. TRAZODONE HCL [Concomitant]
  2. LEXAPRO [Concomitant]
  3. CONTRACEPTIVES NOS (NO INGREDIENTS/SUBSTANCES) [Concomitant]
  4. GILENYA [Suspect]
     Indication: RELAPSING-REMITTING MULTIPLE SCLEROSIS
     Dosage: ORAL
     Route: 048
     Dates: start: 20101229, end: 20110323
  5. NATALIZUMAB (NATALIZUMAB) [Concomitant]

REACTIONS (21)
  - PERSONALITY CHANGE [None]
  - APHASIA [None]
  - ASTHENIA [None]
  - HEMIPARESIS [None]
  - CONVULSION [None]
  - DRUG INEFFECTIVE [None]
  - AFFECTIVE DISORDER [None]
  - COGNITIVE DISORDER [None]
  - ACTIVITIES OF DAILY LIVING IMPAIRED [None]
  - ANGER [None]
  - BRAIN HERNIATION [None]
  - UNRESPONSIVE TO STIMULI [None]
  - BRAIN OEDEMA [None]
  - DEHYDRATION [None]
  - HEADACHE [None]
  - DEPRESSION [None]
  - MULTIPLE SCLEROSIS RELAPSE [None]
  - INFLUENZA [None]
  - HOSTILITY [None]
  - AGGRESSION [None]
  - CENTRAL NERVOUS SYSTEM LESION [None]
